FAERS Safety Report 5274715-X (Version None)
Quarter: 2007Q1

REPORT INFORMATION
  Report Type: 
  Country: None (occurrence: None)
  Receive Date: 20070320
  Receipt Date: 20070313
  Transmission Date: 20070707
  Serious: Yes (Other)
  Sender: FDA-Public Use
  Company Number: 163-20785-06090820

PATIENT
  Age: 58 Year
  Sex: Male

DRUGS (3)
  1. THALOMID [Suspect]
     Indication: MULTIPLE MYELOMA
     Dosage: 200MG - 100MG - 50 MG, DAILY, ORAL
     Route: 048
     Dates: start: 20050401, end: 20060501
  2. DEXAMETHASONE TAB [Suspect]
     Dosage: 40-20MG, DAILY EVERY 4 DAYS,
     Dates: start: 20050401, end: 20060501
  3. VELCADE [Suspect]
     Indication: MULTIPLE MYELOMA

REACTIONS (7)
  - CARDIAC DISORDER [None]
  - CONDITION AGGRAVATED [None]
  - DIASTOLIC DYSFUNCTION [None]
  - FLUID OVERLOAD [None]
  - HYPERTROPHIC CARDIOMYOPATHY [None]
  - NEUROPATHY PERIPHERAL [None]
  - NON-OBSTRUCTIVE CARDIOMYOPATHY [None]
